FAERS Safety Report 13946904 (Version 2)
Quarter: 2017Q4

REPORT INFORMATION
  Report Type: Report from Study
  Country: None (occurrence: GB)
  Receive Date: 20170907
  Receipt Date: 20171017
  Transmission Date: 20180320
  Serious: Yes (Death, Hospitalization)
  Sender: FDA-Public Use
  Company Number: GB-ABBVIE-17P-167-2054277-00

PATIENT
  Age: 64 Year
  Sex: Male
  Weight: 70 kg

DRUGS (2)
  1. VENETOCLAX. [Suspect]
     Active Substance: VENETOCLAX
     Indication: CHRONIC LYMPHOCYTIC LEUKAEMIA
     Route: 048
     Dates: end: 20170514
  2. RANITIDINE. [Concomitant]
     Active Substance: RANITIDINE
     Indication: STEROID THERAPY
     Route: 048

REACTIONS (10)
  - Anaemia [Fatal]
  - Lethargy [Fatal]
  - Lymphadenopathy [Unknown]
  - Richter^s syndrome [Fatal]
  - Infection [Unknown]
  - Weight decreased [Fatal]
  - Blood count abnormal [Fatal]
  - Cellulitis [Unknown]
  - Chronic lymphocytic leukaemia transformation [Fatal]
  - General symptom [Unknown]

NARRATIVE: CASE EVENT DATE: 2017
